FAERS Safety Report 5594212-1 (Version None)
Quarter: 2008Q1

REPORT INFORMATION
  Report Type: 
  Country: None (occurrence: None)
  Receive Date: 20080115
  Receipt Date: 20080103
  Transmission Date: 20080703
  Serious: Yes (Death)
  Sender: FDA-Public Use
  Company Number: MEDI-0006343

PATIENT
  Sex: Male

DRUGS (1)
  1. SYNAGIS [Suspect]

REACTIONS (6)
  - BRONCHIOLITIS [None]
  - CARDIAC DISORDER [None]
  - LETHARGY [None]
  - MALAISE [None]
  - NASOPHARYNGITIS [None]
  - RESPIRATORY FAILURE [None]
